FAERS Safety Report 6765045-5 (Version None)
Quarter: 2010Q2

REPORT INFORMATION
  Report Type: 
  Country: None (occurrence: None)
  Receive Date: 20100609
  Receipt Date: 20100429
  Transmission Date: 20101027
  Serious: No
  Sender: FDA-Public Use
  Company Number: 2010010322

PATIENT
  Age: 4 Year
  Sex: Male
  Weight: 19.0511 kg

DRUGS (2)
  1. CHILDREN'S ZYRTEC ALLERGY [Suspect]
     Indication: HYPERSENSITIVITY
     Dosage: ONE TABLET ONCE, ORAL
     Route: 048
     Dates: start: 20100429, end: 20100429
  2. MOMETASONE FUROATE [Concomitant]

REACTIONS (1)
  - ACCIDENTAL EXPOSURE [None]
